FAERS Safety Report 6136220-8 (Version None)
Quarter: 2009Q1

REPORT INFORMATION
  Report Type: 
  Country: None (occurrence: None)
  Receive Date: 20090330
  Receipt Date: 20090318
  Transmission Date: 20090719
  Serious: Yes (Disabling, Other)
  Sender: FDA-Public Use
  Company Number: BR-BAYER-200913938LA

PATIENT
  Age: 47 Year
  Sex: Female

DRUGS (5)
  1. BETAFERON [Suspect]
     Indication: MULTIPLE SCLEROSIS
     Dosage: BETAJECT
     Route: 058
     Dates: start: 20070901
  2. UNKNOWN DRUG [Concomitant]
     Indication: HYPERTENSION
     Dosage: TOTAL DAILY DOSE: 1 DF
     Route: 048
     Dates: start: 20070101
  3. APRAZ [Concomitant]
     Indication: DEPRESSION
     Dosage: TOTAL DAILY DOSE: 1.5 DF
     Route: 048
     Dates: start: 20080101
  4. CYMBALTA [Concomitant]
     Indication: DEPRESSION
     Dosage: TOTAL DAILY DOSE: 1 DF
     Route: 048
     Dates: start: 20080101
  5. UNKNOWN DRUG [Concomitant]
     Indication: INSOMNIA
     Dosage: TOTAL DAILY DOSE: 0.5 DF
     Route: 048
     Dates: start: 20090101

REACTIONS (12)
  - ABASIA [None]
  - CHOLELITHIASIS [None]
  - DYSPNOEA EXERTIONAL [None]
  - FATIGUE [None]
  - HEPATIC STEATOSIS [None]
  - HYPERAESTHESIA [None]
  - MULTIPLE SCLEROSIS [None]
  - MULTIPLE SCLEROSIS RELAPSE [None]
  - MUSCULAR WEAKNESS [None]
  - NEURITIS [None]
  - PAIN OF SKIN [None]
  - VOMITING [None]
